FAERS Safety Report 16229540 (Version 1)
Quarter: 2019Q2

REPORT INFORMATION
  Report Type: Spontaneous
  Country: US (occurrence: US)
  Receive Date: 20190423
  Receipt Date: 20190423
  Transmission Date: 20190711
  Serious: No
  Sender: FDA-Public Use
  Company Number: US-BAYER-2019-082781

PATIENT
  Sex: Female

DRUGS (2)
  1. PSYLLIUM HYDROPHILIC MUCILLOID [Suspect]
     Active Substance: PSYLLIUM HUSK
     Dosage: UNK
  2. MIRALAX [Suspect]
     Active Substance: POLYETHYLENE GLYCOL 3350
     Indication: GASTROINTESTINAL DISORDER
     Dosage: UNK
     Route: 065

REACTIONS (1)
  - Product use issue [Unknown]
